FAERS Safety Report 12782865 (Version 2)
Quarter: 2016Q4

REPORT INFORMATION
  Report Type: Report from Study
  Country: IE (occurrence: IE)
  Receive Date: 20160927
  Receipt Date: 20161020
  Transmission Date: 20170207
  Serious: Yes (Other)
  Sender: FDA-Public Use
  Company Number: PHFR2016IE007654

PATIENT
  Age: 56 Year
  Sex: Female

DRUGS (10)
  1. COMBIVENT [Concomitant]
     Active Substance: ALBUTEROL SULFATE\IPRATROPIUM BROMIDE
     Indication: RESPIRATORY DISORDER
     Dosage: 500 UG/2.5 MG
     Route: 065
     Dates: start: 20131128
  2. BECLAZONE [Concomitant]
     Indication: RESPIRATORY DISORDER
     Dosage: 100 UG, UNK
     Route: 055
  3. VENTOLIN HFA [Concomitant]
     Active Substance: ALBUTEROL SULFATE
     Indication: RESPIRATORY DISORDER
     Dosage: 200 UG, QD
     Route: 055
     Dates: start: 20150911
  4. NICORETTE//NICOTINE [Concomitant]
     Indication: EX-TOBACCO USER
     Dosage: 2 MG, QD
     Route: 065
     Dates: start: 20160617
  5. ULTIBRO BREEZHALER [Suspect]
     Active Substance: GLYCOPYRRONIUM\INDACATEROL
     Indication: CHRONIC OBSTRUCTIVE PULMONARY DISEASE
     Dosage: 85 UG INDACATEROL, 43 UG GLYCOPYRRONIUM BROMIDE,  1 DF, UNK
     Route: 055
     Dates: start: 20150911
  6. TRITACE [Concomitant]
     Active Substance: RAMIPRIL
     Indication: HYPERTENSION
     Dosage: 5 MG, QD
     Route: 048
     Dates: start: 20160719
  7. NEXIUM [Concomitant]
     Active Substance: ESOMEPRAZOLE MAGNESIUM
     Indication: GASTROINTESTINAL DISORDER
     Dosage: UNK, QD
     Route: 048
     Dates: start: 20140702
  8. ZITHROMAX [Concomitant]
     Active Substance: AZITHROMYCIN DIHYDRATE
     Indication: CHRONIC OBSTRUCTIVE PULMONARY DISEASE
     Dosage: 250 MG, QD
     Route: 048
     Dates: start: 20160726
  9. CYMBALTA [Concomitant]
     Active Substance: DULOXETINE HYDROCHLORIDE
     Indication: DEPRESSION
     Dosage: 60 MG, UNK
     Route: 048
     Dates: start: 20140828
  10. SERC [Concomitant]
     Active Substance: BETAHISTINE HYDROCHLORIDE
     Indication: VERTIGO
     Dosage: 16 MG, UNK
     Route: 048

REACTIONS (4)
  - Wheezing [Recovering/Resolving]
  - Dyspnoea [Recovering/Resolving]
  - Catarrh [Recovering/Resolving]
  - Cough [Recovering/Resolving]

NARRATIVE: CASE EVENT DATE: 20160905
